FAERS Safety Report 22651371 (Version 5)
Quarter: 2023Q4

REPORT INFORMATION
  Report Type: Spontaneous
  Country: US (occurrence: US)
  Receive Date: 20230628
  Receipt Date: 20231120
  Transmission Date: 20240109
  Serious: Yes (Other)
  Sender: FDA-Public Use
  Company Number: US-PFIZER INC-PV202300112312

PATIENT
  Age: 78 Year
  Sex: Female

DRUGS (1)
  1. IBRANCE [Suspect]
     Active Substance: PALBOCICLIB
     Indication: Breast cancer metastatic
     Dosage: TAKE 1 TABLET (100 MG TOTAL) DAILY FOR 21 DAYS THEN BY 7 DAYS OFF
     Route: 048
     Dates: start: 20221222

REACTIONS (8)
  - Cataract [Unknown]
  - Eye haemorrhage [Unknown]
  - COVID-19 [Unknown]
  - Osteopenia [Unknown]
  - Asthenia [Unknown]
  - Urinary tract infection [Unknown]
  - Vomiting [Unknown]
  - Nausea [Unknown]
